FAERS Safety Report 21843293 (Version 2)
Quarter: 2023Q1

REPORT INFORMATION
  Report Type: Spontaneous
  Country: US (occurrence: US)
  Receive Date: 20230110
  Receipt Date: 20230213
  Transmission Date: 20230418
  Serious: Yes (Other)
  Sender: FDA-Public Use
  Company Number: US-PFIZER INC-PV202300001313

PATIENT
  Age: 49 Year
  Sex: Female

DRUGS (2)
  1. XELJANZ [Suspect]
     Active Substance: TOFACITINIB CITRATE
     Indication: Rheumatoid arthritis
     Dosage: 5 MG, 2X/DAY
     Route: 048
     Dates: start: 202212
  2. XELJANZ [Suspect]
     Active Substance: TOFACITINIB CITRATE
     Dosage: 5 MG, 1X/DAY
     Dates: start: 20230206

REACTIONS (12)
  - Wound [Unknown]
  - Condition aggravated [Unknown]
  - Drug ineffective [Unknown]
  - Abdominal distension [Unknown]
  - Abdominal discomfort [Unknown]
  - Productive cough [Unknown]
  - Alopecia [Unknown]
  - Rash [Unknown]
  - Energy increased [Unknown]
  - Headache [Unknown]
  - Product dose omission in error [Unknown]
  - Intentional product misuse [Unknown]
